FAERS Safety Report 21733778 (Version 1)
Quarter: 2022Q4

REPORT INFORMATION
  Report Type: Spontaneous
  Country: US (occurrence: None)
  Receive Date: 20221214
  Receipt Date: 20221214
  Transmission Date: 20230113
  Serious: Yes (Hospitalization)
  Sender: FDA-Public Use
  Company Number: None

PATIENT
  Age: 62 Year
  Sex: Male
  Weight: 80.51 kg

DRUGS (9)
  1. WELIREG [Suspect]
     Active Substance: BELZUTIFAN
     Indication: Metastasis
     Dosage: FREQUENCY : DAILY;?
     Route: 048
  2. ATENOLOL [Concomitant]
  3. CYCLOBENZAPRINE [Concomitant]
     Active Substance: CYCLOBENZAPRINE
  4. ELIQUIS [Concomitant]
     Active Substance: APIXABAN
  5. LEVOTHYROXINE [Concomitant]
  6. LIPITOR [Concomitant]
     Active Substance: ATORVASTATIN CALCIUM
  7. METFORMIN [Concomitant]
     Active Substance: METFORMIN HYDROCHLORIDE
  8. SENNA [Concomitant]
     Active Substance: SENNA LEAF\SENNOSIDES\SENNOSIDES A AND B
  9. WELIREG [Suspect]
     Active Substance: BELZUTIFAN
     Indication: Bone cancer

REACTIONS (2)
  - Confusional state [None]
  - Blood test abnormal [None]
